FAERS Safety Report 22593043 (Version 2)
Quarter: 2023Q2

REPORT INFORMATION
  Report Type: Spontaneous
  Country: ES (occurrence: ES)
  Receive Date: 20230613
  Receipt Date: 20230620
  Transmission Date: 20230721
  Serious: Yes (Other)
  Sender: FDA-Public Use
  Company Number: ES-AMAROX PHARMA GMBH-AMR2023ES01424

PATIENT
  Age: 76 Year
  Sex: Male

DRUGS (11)
  1. OXALIPLATIN [Interacting]
     Active Substance: OXALIPLATIN
     Indication: Adenocarcinoma gastric
     Dosage: 85 MG/M2
     Route: 065
  2. DOCETAXEL [Interacting]
     Active Substance: DOCETAXEL
     Indication: Adenocarcinoma gastric
     Dosage: 50 MG/M2
     Route: 065
  3. ONDANSETRON [Interacting]
     Active Substance: ONDANSETRON
     Indication: Product used for unknown indication
     Dosage: 8 MILLIGRAM (8 MG, 1-1-1 FOR THREE DAYS FROM START OF NEOADJUVANT SYSTEMIC CHEMOTHERAPY)
     Route: 065
  4. LEUCOVORIN CALCIUM [Suspect]
     Active Substance: LEUCOVORIN CALCIUM
     Indication: Adenocarcinoma gastric
     Dosage: 200 MILLIGRAM/SQ. METER, UNK
     Route: 065
  5. METAMIZOLE [Interacting]
     Active Substance: METAMIZOLE
     Indication: Pain
     Dosage: 575 MILLIGRAM (EVERY 8 HOURS)
     Route: 065
  6. LEUCOVORIN [Interacting]
     Active Substance: LEUCOVORIN
     Indication: Adenocarcinoma gastric
     Dosage: UNK (200 MILLILITRE PER SQUARE METRE,DAY 1 OF 14 DAY CYCLE)
     Route: 065
  7. FLUOROURACIL [Interacting]
     Active Substance: FLUOROURACIL
     Indication: Adenocarcinoma gastric
     Dosage: 2600 MG/M2 (CONTINOUS 24 HOUR INFUSION DAY 1 OF 14 DAY CYCLE))
     Route: 065
  8. DEXAMETHASONE [Concomitant]
     Active Substance: DEXAMETHASONE
     Indication: Antiemetic supportive care
     Dosage: 8 MILLIGRAM (8 MG, 1-0-0 THREE DAYS FROM START OF NEOADJUVANT SYSTEMIC CHEMOTHERAPY)
     Route: 065
  9. OMEPRAZOLE [Concomitant]
     Active Substance: OMEPRAZOLE
     Indication: Product used for unknown indication
     Dosage: 20 MILLIGRAM ( 1-0-1)
     Route: 065
  10. FILGRASTIM [Concomitant]
     Active Substance: FILGRASTIM
     Indication: Prophylaxis
     Dosage: UNK (300 MCG, 4 DAYS PRIOR TO START OF NEOADJUVANT SYSTEMIC CHEMOTHERAPY)
     Route: 065
  11. GRANISETRON [Concomitant]
     Active Substance: GRANISETRON
     Indication: Antiemetic supportive care
     Dosage: UNK
     Route: 065

REACTIONS (7)
  - Neurotoxicity [Unknown]
  - Dysaesthesia [Unknown]
  - Toxic skin eruption [Unknown]
  - Skin exfoliation [Unknown]
  - Diarrhoea [Unknown]
  - Mucosal inflammation [Unknown]
  - Drug interaction [Unknown]
